FAERS Safety Report 5355773-0 (Version None)
Quarter: 2007Q2

REPORT INFORMATION
  Report Type: 
  Country: None (occurrence: None)
  Receive Date: 20070611
  Receipt Date: 20070611
  Transmission Date: 20071010
  Serious: Yes (Life-Threatening)
  Sender: FDA-Public Use
  Company Number: None

PATIENT
  Age: 62 Year
  Sex: Male
  Weight: 71.2147 kg

DRUGS (13)
  1. DOCETAXEL [Suspect]
     Indication: SQUAMOUS CELL CARCINOMA
     Dosage: 75MG/M2 IV
     Route: 042
     Dates: start: 20070605, end: 20070605
  2. ZACTIMA [Suspect]
     Dosage: 100 MG ORAL
     Route: 048
     Dates: start: 20070605, end: 20070605
  3. SPIRIVA [Concomitant]
  4. ADVAIR DISKUS 100/50 [Concomitant]
  5. LEVOTHYROXINE SODIUM [Concomitant]
  6. LORAZEPAM [Concomitant]
  7. MONTELUKAST SODIUM [Concomitant]
  8. RANITIDINE [Concomitant]
  9. LEXAPRO [Concomitant]
  10. ROXICODONE [Concomitant]
  11. FENTANYL TRANSDERMAL SYSTEM [Concomitant]
  12. SYNTHROID [Concomitant]
  13. REGLAN [Concomitant]

REACTIONS (2)
  - HYPOTENSION [None]
  - PHARYNGEAL HAEMORRHAGE [None]
